FAERS Safety Report 8518580-3 (Version None)
Quarter: 2012Q3

REPORT INFORMATION
  Report Type: 
  Country: None (occurrence: None)
  Receive Date: 20120718
  Receipt Date: 20120529
  Transmission Date: 20120928
  Serious: No
  Sender: FDA-Public Use
  Company Number: US-BRISTOL-MYERS SQUIBB COMPANY-16641185

PATIENT
  Age: 88 Year
  Sex: Male
  Weight: 75 kg

DRUGS (1)
  1. COUMADIN [Suspect]
     Indication: ATRIAL FIBRILLATION
     Dosage: 100 TABLETS
     Dates: start: 20050101

REACTIONS (1)
  - INTERNATIONAL NORMALISED RATIO INCREASED [None]
